FAERS Safety Report 14154181 (Version 1)
Quarter: 2017Q4

REPORT INFORMATION
  Report Type: Spontaneous
  Country: JP (occurrence: JP)
  Receive Date: 20171102
  Receipt Date: 20171102
  Transmission Date: 20180321
  Serious: Yes (Death)
  Sender: FDA-Public Use
  Company Number: JP-ELI_LILLY_AND_COMPANY-JP201710012886

PATIENT
  Sex: Male

DRUGS (1)
  1. DULOXETINE HYDROCHLORIDE. [Suspect]
     Active Substance: DULOXETINE HYDROCHLORIDE
     Indication: POLYNEUROPATHY IN MALIGNANT DISEASE
     Dosage: 20 MG, EACH EVENING
     Route: 048
     Dates: start: 20160906, end: 20160906

REACTIONS (1)
  - Gastric cancer [Fatal]
